FAERS Safety Report 7426275-2 (Version None)
Quarter: 2011Q2

REPORT INFORMATION
  Report Type: 
  Country: None (occurrence: None)
  Receive Date: 20110420
  Receipt Date: 20110414
  Transmission Date: 20111010
  Serious: Yes (Hospitalization)
  Sender: FDA-Public Use
  Company Number: A0903087A

PATIENT
  Sex: Male

DRUGS (3)
  1. AVANDARYL [Suspect]
     Route: 048
     Dates: start: 20060302, end: 20101001
  2. AVANDIA [Suspect]
     Indication: DIABETES MELLITUS
     Dosage: 4MG TWICE PER DAY
     Route: 048
     Dates: start: 20050503, end: 20060901
  3. AVANDAMET [Suspect]
     Route: 048
     Dates: start: 20041211, end: 20050201

REACTIONS (6)
  - DIASTOLIC DYSFUNCTION [None]
  - VENTRICULAR HYPERTROPHY [None]
  - HYPERTENSION [None]
  - CARDIOVASCULAR DISORDER [None]
  - CONVULSION [None]
  - RENAL FAILURE ACUTE [None]
